FAERS Safety Report 15358152 (Version 1)
Quarter: 2018Q3

REPORT INFORMATION
  Report Type: Spontaneous
  Country: US (occurrence: US)
  Receive Date: 20180906
  Receipt Date: 20180906
  Transmission Date: 20181010
  Serious: No
  Sender: FDA-Public Use
  Company Number: US-PERRIGO-17US029948

PATIENT
  Sex: Female

DRUGS (2)
  1. MINOXIDIL. [Suspect]
     Active Substance: MINOXIDIL
     Indication: ALOPECIA
     Dosage: 1 ML, BID
     Route: 061
     Dates: end: 20171012
  2. MINOXIDIL. [Suspect]
     Active Substance: MINOXIDIL
     Dosage: 1.5 ML, BID
     Route: 061
     Dates: start: 20171013

REACTIONS (3)
  - Application site paraesthesia [Not Recovered/Not Resolved]
  - Incorrect dose administered [Unknown]
  - Application site pain [Not Recovered/Not Resolved]

NARRATIVE: CASE EVENT DATE: 201710
